FAERS Safety Report 4528913-0 (Version None)
Quarter: 2004Q4

REPORT INFORMATION
  Report Type: 
  Country: None (occurrence: None)
  Receive Date: 20041215
  Receipt Date: 20041215
  Transmission Date: 20050328
  Serious: Yes (Life-Threatening)
  Sender: FDA-Public Use
  Company Number: None

PATIENT
  Age: 63 Year
  Sex: Male
  Weight: 81.6475 kg

DRUGS (2)
  1. CRESTOR [Suspect]
     Indication: BLOOD CHOLESTEROL INCREASED
     Dosage: 10 MG ONCE DAILY, ORALLY
     Route: 048
     Dates: start: 20040108, end: 20040219
  2. CLARINEX [Concomitant]

REACTIONS (14)
  - BLOOD URINE PRESENT [None]
  - CHROMATURIA [None]
  - CONFUSIONAL STATE [None]
  - FACE OEDEMA [None]
  - HYPERTENSION [None]
  - LETHARGY [None]
  - MYALGIA [None]
  - NAUSEA [None]
  - OEDEMA PERIPHERAL [None]
  - PAIN IN EXTREMITY [None]
  - PROTEIN URINE [None]
  - RETINAL OEDEMA [None]
  - URINE OUTPUT DECREASED [None]
  - VISUAL DISTURBANCE [None]
